FAERS Safety Report 7826766-6 (Version None)
Quarter: 2011Q4

REPORT INFORMATION
  Report Type: 
  Country: None (occurrence: None)
  Receive Date: 20111018
  Receipt Date: 20110822
  Transmission Date: 20120403
  Serious: Yes (Hospitalization)
  Sender: FDA-Public Use
  Company Number: 11-498

PATIENT
  Age: 30 Year
  Sex: Female
  Weight: 63.05 kg

DRUGS (5)
  1. COCAINE [Suspect]
     Indication: INTENTIONAL SELF-INJURY
  2. OPIUM ALKALOIDS + DERIVATIVES [Suspect]
     Indication: INTENTIONAL SELF-INJURY
  3. ASPIRIN [Suspect]
     Indication: INTENTIONAL SELF-INJURY
     Dosage: 1215-1458 MG / ORAL
     Route: 048
     Dates: start: 20110815
  4. MIDOL LIQUID GELS [Suspect]
     Indication: INTENTIONAL SELF-INJURY
     Dosage: 2,000 MG/ ORAL
     Route: 048
     Dates: start: 20110815
  5. IBUPROFEN [Suspect]
     Indication: INTENTIONAL SELF-INJURY
     Dosage: 48,000 MG / ORAL
     Route: 048
     Dates: start: 20110815

REACTIONS (5)
  - LETHARGY [None]
  - DIARRHOEA [None]
  - DISORIENTATION [None]
  - INTENTIONAL SELF-INJURY [None]
  - CONFUSIONAL STATE [None]
